FAERS Safety Report 8942384 (Version 1)
Quarter: 2012Q4

REPORT INFORMATION
  Report Type: Spontaneous
  Country: US (occurrence: None)
  Receive Date: 20121121
  Receipt Date: 20121121
  Transmission Date: 20130627
  Serious: Yes (Other)
  Sender: FDA-Public Use
  Company Number: TPA2012A09046

PATIENT
  Age: 79 Year
  Sex: Male
  Weight: 83.46 kg

DRUGS (3)
  1. ACTOS (PIOGLITAZONE HYDROCHLORIDE) [Suspect]
     Indication: TYPE II DIABETES MELLITUS
     Dates: start: 20071213, end: 20110509
  2. METFORMIN [Concomitant]
  3. AMARYL (GLIMEPIRIDE) [Concomitant]

REACTIONS (4)
  - Ureteral neoplasm [None]
  - Bladder cancer [None]
  - Urinary tract infection [None]
  - Haematuria [None]
